FAERS Safety Report 14325724 (Version 2)
Quarter: 2018Q1

REPORT INFORMATION
  Report Type: Spontaneous
  Country: UA (occurrence: UA)
  Receive Date: 20171226
  Receipt Date: 20180213
  Transmission Date: 20180509
  Serious: Yes (Hospitalization)
  Sender: FDA-Public Use
  Company Number: PHHY2017UA189307

PATIENT
  Sex: Female

DRUGS (1)
  1. AMOKSIKLAV QUICKTAB [Suspect]
     Active Substance: AMOXICILLIN\CLAVULANATE POTASSIUM
     Indication: TONSILLITIS
     Dosage: 1 DF, UNK
     Route: 065
     Dates: start: 20161226, end: 20161229

REACTIONS (4)
  - Drug ineffective [Unknown]
  - Hypotension [Recovered/Resolved]
  - Body temperature increased [Recovered/Resolved]
  - Haemorrhage [Recovered/Resolved]

NARRATIVE: CASE EVENT DATE: 20161226
